FAERS Safety Report 14018154 (Version 1)
Quarter: 2017Q3

REPORT INFORMATION
  Report Type: Spontaneous
  Country: US (occurrence: None)
  Receive Date: 20170927
  Receipt Date: 20170927
  Transmission Date: 20171128
  Serious: Yes (Other)
  Sender: FDA-Public Use
  Company Number: None

PATIENT
  Age: 42 Year
  Sex: Female
  Weight: 87.54 kg

DRUGS (1)
  1. ZUBSOLV [Suspect]
     Active Substance: BUPRENORPHINE HYDROCHLORIDE\NALOXONE HYDROCHLORIDE
     Indication: DRUG DEPENDENCE
     Dosage: 3 TABLETS
     Route: 060
     Dates: start: 20170908, end: 20170927

REACTIONS (3)
  - Vomiting [None]
  - Loss of personal independence in daily activities [None]
  - Migraine [None]

NARRATIVE: CASE EVENT DATE: 20170909
